FAERS Safety Report 23970400 (Version 1)
Quarter: 2024Q2

REPORT INFORMATION
  Report Type: Report from Study
  Country: CA (occurrence: CA)
  Receive Date: 20240613
  Receipt Date: 20240613
  Transmission Date: 20240716
  Serious: Yes (Other)
  Sender: FDA-Public Use
  Company Number: CA-TAKEDA-2024TUS040961

PATIENT
  Age: 55 Year
  Sex: Male

DRUGS (2)
  1. VEDOLIZUMAB [Suspect]
     Active Substance: VEDOLIZUMAB
     Indication: Crohn^s disease
     Dosage: 300 MILLIGRAM
     Route: 042
     Dates: start: 20240319
  2. VEDOLIZUMAB [Suspect]
     Active Substance: VEDOLIZUMAB
     Dosage: 300 MILLIGRAM
     Route: 042
     Dates: end: 20240402

REACTIONS (13)
  - Seizure [Unknown]
  - Salivary gland calculus [Unknown]
  - Dysphonia [Unknown]
  - Retching [Unknown]
  - Abdominal pain upper [Unknown]
  - Tremor [Unknown]
  - Rhinorrhoea [Unknown]
  - Abdominal pain [Unknown]
  - Vomiting [Unknown]
  - Chills [Unknown]
  - Back pain [Unknown]
  - Headache [Unknown]
  - Pyrexia [Unknown]

NARRATIVE: CASE EVENT DATE: 20240319
